FAERS Safety Report 20843597 (Version 1)
Quarter: 2022Q2

REPORT INFORMATION
  Report Type: Spontaneous
  Country: JP (occurrence: JP)
  Receive Date: 20220518
  Receipt Date: 20220518
  Transmission Date: 20220721
  Serious: Yes (Hospitalization)
  Sender: FDA-Public Use
  Company Number: JP-NOVARTISPH-NVSJ2022JP090332

PATIENT
  Age: 80 Year
  Sex: Male

DRUGS (1)
  1. METFORMIN HYDROCHLORIDE\VILDAGLIPTIN [Suspect]
     Active Substance: METFORMIN HYDROCHLORIDE\VILDAGLIPTIN
     Indication: Product used for unknown indication
     Dosage: 1 DF: METFORMIN HYDROCHLORIDE UNK / VILDAGLIPTIN 50MG UNK
     Route: 048

REACTIONS (3)
  - Immobilisation syndrome [Unknown]
  - Feeding disorder [Recovered/Resolved]
  - Tremor [Unknown]
